FAERS Safety Report 17875891 (Version 1)
Quarter: 2020Q2

REPORT INFORMATION
  Report Type: Spontaneous
  Country: US (occurrence: US)
  Receive Date: 20200609
  Receipt Date: 20200609
  Transmission Date: 20200714
  Serious: Yes (Other)
  Sender: FDA-Public Use
  Company Number: None

PATIENT
  Age: 59 Year
  Sex: Female
  Weight: 94 kg

DRUGS (20)
  1. REMDESIVIR. [Suspect]
     Active Substance: REMDESIVIR
     Indication: COVID-19
     Route: 041
     Dates: start: 20200602, end: 20200604
  2. ASPIRIN. [Concomitant]
     Active Substance: ASPIRIN
     Dates: start: 20200603, end: 20200608
  3. SODIUM PHOSPHATE [Concomitant]
     Active Substance: SODIUM PHOSPHATE
     Dates: start: 20200604, end: 20200604
  4. OXYCODONE [Concomitant]
     Active Substance: OXYCODONE
     Dates: start: 20200603, end: 20200604
  5. POTASSIUM CHLORIDE. [Concomitant]
     Active Substance: POTASSIUM CHLORIDE
     Dates: start: 20200604, end: 20200604
  6. THIAMINE. [Concomitant]
     Active Substance: THIAMINE
     Dates: start: 20200602, end: 20200608
  7. MULTIVITAMIN [Concomitant]
     Active Substance: VITAMINS
     Dates: start: 20200603, end: 20200608
  8. POTASSIUM PHOSPHATE [Concomitant]
     Active Substance: POTASSIUM PHOSPHATE
     Dates: start: 20200604, end: 20200604
  9. ACYCLOVIR. [Concomitant]
     Active Substance: ACYCLOVIR
     Dates: start: 20200603, end: 20200608
  10. ALBUTEROL. [Concomitant]
     Active Substance: ALBUTEROL
     Dates: start: 20200602, end: 20200604
  11. CALCIUM GLUCONATE. [Concomitant]
     Active Substance: CALCIUM GLUCONATE
     Dates: start: 20200604, end: 20200604
  12. CLONIDINE. [Concomitant]
     Active Substance: CLONIDINE
     Dates: start: 20200603, end: 20200608
  13. GUAIFENESIN. [Concomitant]
     Active Substance: GUAIFENESIN
     Dates: start: 20200602, end: 20200604
  14. MIDODRINE [Concomitant]
     Active Substance: MIDODRINE
     Dates: start: 20200604, end: 20200604
  15. SODIUM CHLORIDE INHALED [Concomitant]
     Dates: start: 20200604, end: 20200604
  16. SULFAMETHOXAZOLE/TRIMETHOPRIM [Concomitant]
     Active Substance: SULFAMETHOXAZOLE\TRIMETHOPRIM
     Dates: start: 20200603, end: 20200608
  17. FAMOTIDINE. [Concomitant]
     Active Substance: FAMOTIDINE
     Dates: start: 20200603, end: 20200604
  18. FENTANYL. [Concomitant]
     Active Substance: FENTANYL
     Dates: start: 20200604, end: 20200604
  19. VITAMIN D3 [Concomitant]
     Active Substance: CHOLECALCIFEROL
     Dates: start: 20200604, end: 20200608
  20. FUROSEMIDE. [Concomitant]
     Active Substance: FUROSEMIDE
     Dates: start: 20200604, end: 20200604

REACTIONS (1)
  - Acute kidney injury [None]

NARRATIVE: CASE EVENT DATE: 20200604
